FAERS Safety Report 16122624 (Version 1)
Quarter: 2019Q1

REPORT INFORMATION
  Report Type: Spontaneous
  Country: BR (occurrence: BR)
  Receive Date: 20190327
  Receipt Date: 20190327
  Transmission Date: 20190418
  Serious: Yes (Other)
  Sender: FDA-Public Use
  Company Number: BR-ABBVIE-19K-020-2717570-00

PATIENT
  Sex: Female

DRUGS (2)
  1. AZACITIDINE. [Concomitant]
     Active Substance: AZACITIDINE
     Indication: ACUTE MYELOID LEUKAEMIA
  2. VENCLEXTA [Suspect]
     Active Substance: VENETOCLAX
     Indication: ACUTE MYELOID LEUKAEMIA
     Route: 048

REACTIONS (7)
  - Bone marrow failure [Unknown]
  - Full blood count decreased [Not Recovered/Not Resolved]
  - Infection [Unknown]
  - Drug interaction [Unknown]
  - Bone marrow disorder [Unknown]
  - Myelodysplastic syndrome [Unknown]
  - Toxicity to various agents [Unknown]
